FAERS Safety Report 18301683 (Version 1)
Quarter: 2020Q3

REPORT INFORMATION
  Report Type: Other
  Country: CA (occurrence: CA)
  Receive Date: 20200923
  Receipt Date: 20200923
  Transmission Date: 20201103
  Serious: Yes (Life-Threatening, Other)
  Sender: FDA-Public Use
  Company Number: CA-APOTEX-2020AP018166

PATIENT
  Age: 69 Year
  Sex: Female
  Weight: 78 kg

DRUGS (1)
  1. AMLODIPINE [Suspect]
     Active Substance: AMLODIPINE BESYLATE
     Indication: BLOOD PRESSURE MEASUREMENT
     Dosage: 5 MILLIGRAM
     Route: 048

REACTIONS (4)
  - Pharyngeal swelling [Unknown]
  - Respiratory distress [Unknown]
  - Lip swelling [Unknown]
  - Swelling face [Unknown]
